FAERS Safety Report 4307571-4 (Version None)
Quarter: 2004Q1

REPORT INFORMATION
  Report Type: 
  Country: None (occurrence: None)
  Receive Date: 20040226
  Receipt Date: 20040213
  Transmission Date: 20041129
  Serious: Yes (Other)
  Sender: FDA-Public Use
  Company Number: 2004010387

PATIENT
  Age: 5 Month
  Sex: 0
  Weight: 5 kg

DRUGS (9)
  1. VIAGRA [Suspect]
     Indication: PULMONARY HYPERTENSION
     Dosage: 24 MG
  2. LORAZEPAM [Concomitant]
  3. TRACLEER [Concomitant]
  4. ENOXAPARIN SODIUM [Concomitant]
  5. PANTOPRAZOLE (PANTOPRAZOLE) [Concomitant]
  6. FUROSEMIDE [Concomitant]
  7. CHLOROTHIZIDE (CHLOROTHIAZIDE) [Concomitant]
  8. METHADONE HCL [Concomitant]
  9. EPOPROSTENOL SODIUM (EPOPROSTENOL SODIUM) [Concomitant]

REACTIONS (1)
  - PYREXIA [None]
